FAERS Safety Report 21134943 (Version 1)
Quarter: 2022Q3

REPORT INFORMATION
  Report Type: Spontaneous
  Country: CA (occurrence: CA)
  Receive Date: 20220727
  Receipt Date: 20220727
  Transmission Date: 20221027
  Serious: Yes (Hospitalization)
  Sender: FDA-Public Use
  Company Number: CA-TEVA-2022-CA-2057406

PATIENT
  Age: 43 Year
  Sex: Female

DRUGS (10)
  1. CLONAZEPAM [Suspect]
     Active Substance: CLONAZEPAM
     Indication: Urticaria
     Dosage: 1 DOSAGE FORMS DAILY;
     Route: 048
  2. CLONAZEPAM [Suspect]
     Active Substance: CLONAZEPAM
     Indication: Pruritus
  3. CLONAZEPAM [Suspect]
     Active Substance: CLONAZEPAM
     Indication: Pneumonia
  4. CLONAZEPAM [Suspect]
     Active Substance: CLONAZEPAM
     Indication: Night sweats
  5. CLONAZEPAM [Suspect]
     Active Substance: CLONAZEPAM
     Indication: Middle insomnia
  6. CLONAZEPAM [Suspect]
     Active Substance: CLONAZEPAM
     Indication: Malaise
  7. CLONAZEPAM [Suspect]
     Active Substance: CLONAZEPAM
     Indication: Cardiac infection
  8. CLONAZEPAM [Suspect]
     Active Substance: CLONAZEPAM
     Indication: Anxiety
  9. OMALIZUMAB [Suspect]
     Active Substance: OMALIZUMAB
     Indication: Chronic spontaneous urticaria
     Route: 058
  10. OMALIZUMAB [Suspect]
     Active Substance: OMALIZUMAB
     Route: 058

REACTIONS (8)
  - Cardiac infection [Unknown]
  - Dyspnoea [Unknown]
  - Malaise [Unknown]
  - Middle insomnia [Unknown]
  - Night sweats [Unknown]
  - Pneumonia [Unknown]
  - Pruritus [Unknown]
  - Urticaria [Unknown]
